FAERS Safety Report 7939564-X (Version None)
Quarter: 2011Q4

REPORT INFORMATION
  Report Type: 
  Country: None (occurrence: None)
  Receive Date: 20111125
  Receipt Date: 20110908
  Transmission Date: 20120403
  Serious: No
  Sender: FDA-Public Use
  Company Number: US-BAYER-2011-089396

PATIENT
  Age: 56 Year
  Sex: Male
  Weight: 70 kg

DRUGS (5)
  1. ASPIRIN [Concomitant]
  2. FISH OIL [Concomitant]
  3. CRESTOR [Concomitant]
  4. CARVEDILOL [Concomitant]
  5. ALEVE (CAPLET) [Suspect]
     Indication: HEADACHE
     Dosage: UNK
     Route: 048
     Dates: end: 20110908

REACTIONS (1)
  - PRURITUS [None]
